FAERS Safety Report 4924785-0 (Version None)
Quarter: 2006Q1

REPORT INFORMATION
  Report Type: 
  Country: None (occurrence: None)
  Receive Date: 20060222
  Receipt Date: 20060209
  Transmission Date: 20060701
  Serious: Yes (Death)
  Sender: FDA-Public Use
  Company Number: 2006-01-1255

PATIENT
  Sex: Male

DRUGS (1)
  1. TEMOZOLOMIDE CAPSULES [Suspect]
     Dosage: SEE IMAGE, ORAL
     Route: 048

REACTIONS (1)
  - BRAIN NEOPLASM [None]
